FAERS Safety Report 4598810-3 (Version None)
Quarter: 2005Q1

REPORT INFORMATION
  Report Type: 
  Country: None (occurrence: None)
  Receive Date: 20050301
  Receipt Date: 20050216
  Transmission Date: 20050727
  Serious: Yes (Other)
  Sender: FDA-Public Use
  Company Number: 2005033652

PATIENT
  Sex: Male
  Weight: 68.0396 kg

DRUGS (7)
  1. NEURONTIN                    (GABPENTIN) [Suspect]
     Indication: NEUROPATHY PERIPHERAL
     Dates: start: 19990101, end: 20010101
  2. LORAZEPAM [Concomitant]
  3. ATENOLOL [Concomitant]
  4. DIGOXIN [Concomitant]
  5. LOSARTAN POTASSIUM [Concomitant]
  6. AMLODIPINE BESYLATE [Concomitant]
  7. VITAMINS (VITAMINS) [Concomitant]

REACTIONS (4)
  - DISORIENTATION [None]
  - DRUG INEFFECTIVE [None]
  - DYSPNOEA [None]
  - HYPERTENSION [None]
